FAERS Safety Report 6728956-2 (Version None)
Quarter: 2010Q2

REPORT INFORMATION
  Report Type: 
  Country: None (occurrence: None)
  Receive Date: 20100517
  Receipt Date: 20100315
  Transmission Date: 20101027
  Serious: No
  Sender: FDA-Public Use
  Company Number: US-ABBOTT-10P-163-0633414-00

PATIENT
  Sex: Male
  Weight: 70.824 kg

DRUGS (2)
  1. SIMCOR [Suspect]
     Indication: BLOOD CHOLESTEROL ABNORMAL
     Dosage: 500/20 DAILY
     Dates: start: 20091001, end: 20091001
  2. SIMCOR [Suspect]
     Dates: start: 20100301, end: 20100301

REACTIONS (3)
  - NIGHT SWEATS [None]
  - PARAESTHESIA [None]
  - PRURITUS [None]
